FAERS Safety Report 7495442-4 (Version None)
Quarter: 2011Q2

REPORT INFORMATION
  Report Type: 
  Country: None (occurrence: None)
  Receive Date: 20110523
  Receipt Date: 20110419
  Transmission Date: 20111010
  Serious: No
  Sender: FDA-Public Use
  Company Number: US-TYCO HEALTHCARE/MALLINCKRODT-T201100810

PATIENT
  Sex: Male
  Weight: 68.934 kg

DRUGS (4)
  1. FENTANYL-100 [Suspect]
     Indication: RHEUMATOID ARTHRITIS
  2. OXYCODONE HCL [Concomitant]
     Indication: BREAKTHROUGH PAIN
     Dosage: 15 MG, PRN
  3. FENTANYL-100 [Suspect]
     Indication: OSTEOARTHRITIS
     Dosage: 1 PATCH EVERY 48 HOURS
     Dates: start: 20110331
  4. MUSCLE RELAXANTS [Concomitant]
     Indication: MUSCLE SPASMS
     Dosage: UNK

REACTIONS (2)
  - DRUG EFFECT DECREASED [None]
  - WITHDRAWAL SYNDROME [None]
